FAERS Safety Report 7482702-6 (Version None)
Quarter: 2011Q2

REPORT INFORMATION
  Report Type: 
  Country: None (occurrence: None)
  Receive Date: 20110516
  Receipt Date: 20110509
  Transmission Date: 20111010
  Serious: Yes (Hospitalization)
  Sender: FDA-Public Use
  Company Number: NL-TEVA-262152ISR

PATIENT
  Sex: Female

DRUGS (6)
  1. ADALIMUMAB [Suspect]
     Indication: RHEUMATOID ARTHRITIS
     Dosage: 2.8571 MICROGRAM;
     Dates: start: 20060426, end: 20101216
  2. ATENOLOL [Concomitant]
     Route: 048
     Dates: start: 20040101
  3. TRIAMTERENE AND HYDROCHLOROTHIAZID [Concomitant]
     Dosage: 50/25MG
     Dates: start: 20040101
  4. ATORVASTATIN CALCIUM [Concomitant]
     Dosage: 10 MILLIGRAM;
     Route: 048
     Dates: start: 20040101
  5. ACETYL SALICYLIC ACID USP BAT [Concomitant]
     Dosage: 80 MILLIGRAM;
     Route: 048
     Dates: start: 20040101
  6. METHOTREXATE [Suspect]
     Indication: RHEUMATOID ARTHRITIS
     Dosage: 1.0714 MILLIGRAM;
     Route: 048
     Dates: start: 19980917

REACTIONS (1)
  - LUNG NEOPLASM MALIGNANT [None]
